FAERS Safety Report 14235119 (Version 9)
Quarter: 2018Q3

REPORT INFORMATION
  Report Type: Spontaneous
  Country: NL (occurrence: NL)
  Receive Date: 20171129
  Receipt Date: 20180817
  Transmission Date: 20181010
  Serious: Yes (Congenital Anomaly, Other)
  Sender: FDA-Public Use
  Company Number: NL-PFIZER INC-2017511378

PATIENT
  Age: 16 Year
  Sex: Male
  Weight: 49 kg

DRUGS (8)
  1. CARBOPLATIN. [Suspect]
     Active Substance: CARBOPLATIN
     Indication: EMBRYONAL RHABDOMYOSARCOMA
     Dosage: 34 MG/KG, 1 COURSE (CEV)
  2. ETOPOSIDE. [Suspect]
     Active Substance: ETOPOSIDE
     Indication: RHABDOMYOSARCOMA
     Dosage: 2 CYCLES (IVE)
  3. IFOSFAMIDE. [Suspect]
     Active Substance: IFOSFAMIDE
     Dosage: 2 CYCLES (IVE)
  4. IFOSFAMIDE. [Suspect]
     Active Substance: IFOSFAMIDE
     Indication: RHABDOMYOSARCOMA
     Dosage: 3 CYCLES (IVA)/2 CYCLES (IVE)
  5. DACTINOMYCIN [Suspect]
     Active Substance: DACTINOMYCIN
     Indication: EMBRYONAL RHABDOMYOSARCOMA
     Dosage: 3 CYCLES
  6. EPIRUBICIN HCL [Suspect]
     Active Substance: EPIRUBICIN HYDROCHLORIDE
     Indication: RHABDOMYOSARCOMA
     Dosage: 5 MG/KG, 1 COURSE (CEV)
  7. VINCRISTINE SULFATE. [Suspect]
     Active Substance: VINCRISTINE SULFATE
     Indication: RHABDOMYOSARCOMA
     Dosage: 3 CYCLES (IVA)/2 CYCLES (IVE)
  8. ACTINOMYCIN D [Suspect]
     Active Substance: DACTINOMYCIN
     Indication: EMBRYONAL RHABDOMYOSARCOMA
     Dosage: 3 CYCLES (IVA)

REACTIONS (9)
  - Cerebral disorder [Unknown]
  - Delayed puberty [Unknown]
  - Nervous system disorder [Unknown]
  - Drug resistance [Unknown]
  - Product use in unapproved indication [Unknown]
  - Osteopenia [Unknown]
  - Basal cell naevus syndrome [Unknown]
  - Body height below normal [Unknown]
  - Product use issue [Unknown]
